FAERS Safety Report 4739271-0 (Version None)
Quarter: 2005Q3

REPORT INFORMATION
  Report Type: 
  Country: None (occurrence: None)
  Receive Date: 20050810
  Receipt Date: 20050106
  Transmission Date: 20060218
  Serious: No
  Sender: FDA-Public Use
  Company Number: US-GLAXOSMITHKLINE-A0539673A

PATIENT
  Sex: Female

DRUGS (3)
  1. PAXIL [Suspect]
     Indication: DEPRESSION
     Dosage: 15MG PER DAY
     Route: 048
     Dates: start: 20030101
  2. PAXIL [Suspect]
     Route: 048
  3. NO CONCURRENT MEDICATION [Concomitant]

REACTIONS (4)
  - DIARRHOEA [None]
  - DIZZINESS [None]
  - DRUG WITHDRAWAL SYNDROME [None]
  - SENSORY DISTURBANCE [None]
